FAERS Safety Report 9436704 (Version 2)
Quarter: 2013Q3

REPORT INFORMATION
  Report Type: Report from Study
  Country: KR (occurrence: KR)
  Receive Date: 20130802
  Receipt Date: 20130808
  Transmission Date: 20140515
  Serious: Yes (Hospitalization)
  Sender: FDA-Public Use
  Company Number: KR-JNJFOC-20130713486

PATIENT
  Age: 14 Year
  Sex: Male
  Weight: 61 kg

DRUGS (26)
  1. REMICADE [Suspect]
     Indication: CROHN^S DISEASE
     Route: 042
     Dates: start: 20120919, end: 20120919
  2. REMICADE [Suspect]
     Indication: CROHN^S DISEASE
     Route: 042
     Dates: start: 20120718, end: 20120718
  3. REMICADE [Suspect]
     Indication: CROHN^S DISEASE
     Dosage: 4.5 MG/KG
     Route: 042
     Dates: start: 20120518, end: 20120518
  4. REMICADE [Suspect]
     Indication: CROHN^S DISEASE
     Route: 042
     Dates: start: 20111229
  5. REMICADE [Suspect]
     Indication: CROHN^S DISEASE
     Route: 042
     Dates: start: 201201
  6. REMICADE [Suspect]
     Indication: CROHN^S DISEASE
     Route: 042
     Dates: start: 201203, end: 20120517
  7. SOLONDO [Concomitant]
     Indication: CROHN^S DISEASE
     Dosage: 1TAB
     Route: 048
     Dates: start: 20120921, end: 20120927
  8. SOLONDO [Concomitant]
     Indication: CROHN^S DISEASE
     Dosage: 0.5 TAB
     Route: 048
     Dates: start: 20120928, end: 20121004
  9. SOLONDO [Concomitant]
     Indication: CROHN^S DISEASE
     Dosage: 2TAB
     Route: 048
     Dates: start: 20120907, end: 20120913
  10. SOLONDO [Concomitant]
     Indication: CROHN^S DISEASE
     Dosage: 2.5TAB
     Route: 048
     Dates: start: 20120831, end: 20120906
  11. SOLONDO [Concomitant]
     Indication: CROHN^S DISEASE
     Dosage: 3TAB
     Route: 048
     Dates: start: 20120824, end: 20120830
  12. SOLONDO [Concomitant]
     Indication: CROHN^S DISEASE
     Dosage: 3.5TAB
     Route: 048
     Dates: start: 20120817, end: 20120823
  13. SOLONDO [Concomitant]
     Indication: CROHN^S DISEASE
     Dosage: 4 TAB
     Route: 048
     Dates: start: 20120810, end: 20120816
  14. SOLONDO [Concomitant]
     Indication: CROHN^S DISEASE
     Dosage: 5 TAB
     Route: 048
     Dates: start: 20120727, end: 20120802
  15. SOLONDO [Concomitant]
     Indication: CROHN^S DISEASE
     Dosage: 6TAB
     Route: 048
     Dates: start: 20120720, end: 20120726
  16. SOLONDO [Concomitant]
     Indication: CROHN^S DISEASE
     Dosage: 7TAB
     Route: 048
     Dates: start: 20120713, end: 20120719
  17. SOLONDO [Concomitant]
     Indication: CROHN^S DISEASE
     Dosage: 8TAB
     Route: 048
     Dates: start: 20120706, end: 20120712
  18. SOLONDO [Concomitant]
     Indication: CROHN^S DISEASE
     Dosage: 9TAB
     Route: 048
     Dates: start: 20120629, end: 20120705
  19. SOLONDO [Concomitant]
     Indication: CROHN^S DISEASE
     Dosage: 10 TAB
     Route: 048
     Dates: start: 20120622, end: 20120628
  20. SOLONDO [Concomitant]
     Indication: CROHN^S DISEASE
     Dosage: 3.33 TAB
     Route: 048
     Dates: start: 20120516, end: 20120621
  21. SOLONDO [Concomitant]
     Indication: CROHN^S DISEASE
     Dosage: FREQUENCY: 3
     Route: 048
     Dates: start: 20110729, end: 20111216
  22. SOLONDO [Concomitant]
     Indication: CROHN^S DISEASE
     Dosage: 1.5TAB
     Route: 048
     Dates: start: 20120914, end: 20120920
  23. SOLONDO [Concomitant]
     Indication: CROHN^S DISEASE
     Dosage: 4.5TAB
     Route: 048
     Dates: start: 20120803, end: 20120809
  24. SULFASALAZINE [Concomitant]
     Indication: CROHN^S DISEASE
     Dosage: 2.66 TAB
     Route: 048
     Dates: start: 20110729, end: 20111216
  25. AZAPRESS [Concomitant]
     Indication: CROHN^S DISEASE
     Dosage: 0.5TAB
     Route: 048
     Dates: start: 20120919, end: 20121009
  26. AZAPRESS [Concomitant]
     Indication: CROHN^S DISEASE
     Dosage: 1TAB
     Route: 048
     Dates: start: 20121012

REACTIONS (1)
  - Crohn^s disease [Recovered/Resolved]
